FAERS Safety Report 9918977 (Version 3)
Quarter: 2014Q2

REPORT INFORMATION
  Report Type: Spontaneous
  Country: IT (occurrence: IT)
  Receive Date: 20140224
  Receipt Date: 20140529
  Transmission Date: 20141212
  Serious: Yes (Hospitalization, Other)
  Sender: FDA-Public Use
  Company Number: IT-ELI_LILLY_AND_COMPANY-IT201402004163

PATIENT
  Age: 57 Year
  Sex: Male

DRUGS (11)
  1. SOMATROPIN [Suspect]
     Indication: BLOOD GONADOTROPHIN DECREASED
     Dosage: 0.9 MG, WEEKLY (1/W)
     Route: 058
     Dates: start: 20030301, end: 20140127
  2. TESTOSTERONE ENANTATE [Suspect]
     Indication: SECONDARY HYPOGONADISM
     Dosage: 250 MG, UNKNOWN
     Route: 030
     Dates: start: 20030101, end: 20140127
  3. AMOXICILLIN [Suspect]
     Indication: TONSILLITIS
     Dosage: UNK, UNKNOWN
     Route: 065
     Dates: start: 20140101
  4. CORTONE [Concomitant]
     Indication: ADRENAL INSUFFICIENCY
     Dosage: 25 MG, OTHER
     Route: 048
  5. CARDIRENE [Concomitant]
     Indication: PRODUCT USED FOR UNKNOWN INDICATION
     Dosage: 75 MG, QD
     Route: 048
  6. KEPPRA [Concomitant]
     Indication: PRODUCT USED FOR UNKNOWN INDICATION
     Dosage: 2750 MG, QD
     Route: 048
  7. EUTHYROX [Concomitant]
     Indication: PRODUCT USED FOR UNKNOWN INDICATION
     Dosage: 125 MG, QD
     Route: 048
  8. MINIRIN [Concomitant]
     Indication: DIABETES INSIPIDUS
     Dosage: 360 UG, QD
     Route: 065
  9. DIBASE [Concomitant]
     Indication: PRODUCT USED FOR UNKNOWN INDICATION
     Dosage: 300000 IU, OTHER
     Route: 065
  10. CITALOPRAM [Concomitant]
     Indication: PRODUCT USED FOR UNKNOWN INDICATION
     Dosage: UNK, UNKNOWN
     Route: 065
  11. TRIATEC                            /00885601/ [Concomitant]
     Indication: PRODUCT USED FOR UNKNOWN INDICATION
     Dosage: UNK, UNKNOWN
     Route: 065

REACTIONS (6)
  - Anaphylactic shock [Unknown]
  - Syncope [Unknown]
  - Injury [Unknown]
  - Adrenocortical insufficiency acute [Unknown]
  - Prostate cancer [Unknown]
  - Tonsillitis [Unknown]
